FAERS Safety Report 13203107 (Version 1)
Quarter: 2017Q1

REPORT INFORMATION
  Report Type: Spontaneous
  Country: GB (occurrence: GB)
  Receive Date: 20170209
  Receipt Date: 20170209
  Transmission Date: 20170428
  Serious: Yes (Other)
  Sender: FDA-Public Use
  Company Number: GB-009507513-1702GBR002551

PATIENT
  Age: 84 Year
  Sex: Female
  Weight: 45 kg

DRUGS (10)
  1. HYPROMELLOSE [Concomitant]
     Active Substance: HYPROMELLOSES
     Dosage: 1 GTT, PRN, IN EACH EYE
     Dates: start: 20160114
  2. DIPROBASE [Concomitant]
     Active Substance: CHLOROCRESOL
     Dosage: FOUR TIMES A DAY (1 DOSAGE FORM AS NEEDED)
     Dates: start: 20160114
  3. RAMIPRIL. [Concomitant]
     Active Substance: RAMIPRIL
     Dosage: 1 DOSAGE FORM, QD
     Dates: start: 20160114
  4. BIMATOPROST. [Concomitant]
     Active Substance: BIMATOPROST
     Dosage: ONE DROP EACH EYE AT NIGHT
     Dates: start: 20160114
  5. LERCANIDIPINE HYDROCHLORIDE [Concomitant]
     Active Substance: LERCANIDIPINE HYDROCHLORIDE
     Dosage: 1 DOSAGE FORM, QD
     Dates: start: 20160114
  6. CALCIUM CARBONATE. [Concomitant]
     Active Substance: CALCIUM CARBONATE
     Dosage: 1 DOSAGE FORM, BID
     Dates: start: 20161209
  7. CALFOVIT D3 [Concomitant]
     Dosage: 1 DOSAGE FORM, QD
     Dates: start: 20161024, end: 20161209
  8. FOSAMAX [Suspect]
     Active Substance: ALENDRONATE SODIUM
     Dosage: UNK
     Route: 048
     Dates: start: 20160720
  9. SIMVASTATIN. [Concomitant]
     Active Substance: SIMVASTATIN
     Dosage: 1 DOSAGE FROM, AT NIGHT
     Dates: start: 20160114
  10. ACETAMINOPHEN. [Concomitant]
     Active Substance: ACETAMINOPHEN
     Dosage: 1-2 TO BE TAKEN FOUR TIMES DAILY
     Dates: start: 20160616

REACTIONS (1)
  - Eye pain [Recovering/Resolving]

NARRATIVE: CASE EVENT DATE: 20170124
